FAERS Safety Report 17107280 (Version 2)
Quarter: 2019Q4

REPORT INFORMATION
  Report Type: Spontaneous
  Country: DE (occurrence: DE)
  Receive Date: 20191203
  Receipt Date: 20191210
  Transmission Date: 20200122
  Serious: Yes (Hospitalization)
  Sender: FDA-Public Use
  Company Number: DE-MYLANLABS-2019M1116235

PATIENT
  Age: 63 Year
  Sex: Female

DRUGS (11)
  1. FENTANYL. [Suspect]
     Active Substance: FENTANYL
     Dosage: 25 UNK 25 ?G, TGL. WECHSEL, PFLASTER TRANSDERMAL
  2. REKAWAN [Concomitant]
     Active Substance: POTASSIUM CHLORIDE
     Dosage: UNK UNK, TID (NK MG, 1-1-1-0)
  3. GLYCOPYRRONIUM;INDACATEROL [Concomitant]
     Dosage: UNK UNK, QD (110|50 ?G, 1-0-0-0)
  4. ESTRADIOL. [Concomitant]
     Active Substance: ESTRADIOL
     Dosage: 2 MILLIGRAM, QD (2 MG, 1-0-0-0)
  5. PANTOPRAZOL                        /01263201/ [Concomitant]
     Active Substance: PANTOPRAZOLE
     Dosage: 40 MILLIGRAM, QD (40 MG, 1-0-0-0)
  6. HYDROCHLOROTHIAZID [Concomitant]
     Active Substance: HYDROCHLOROTHIAZIDE
     Dosage: 25 MILLIGRAM, QD (25 MG, 1-0-0-0)
  7. MIRTAZAPIN [Concomitant]
     Active Substance: MIRTAZAPINE
     Dosage: 15 MILLIGRAM, QD (15 MG, 0-0-0-1)
  8. FENTANYL. [Suspect]
     Active Substance: FENTANYL
     Indication: PRODUCT USED FOR UNKNOWN INDICATION
     Dosage: 50 MICROGRAM TGL. WECHSEL, PFLASTER TRANSDERMAL
     Route: 062
  9. MAGNESIUM [Concomitant]
     Active Substance: MAGNESIUM
     Dosage: UNK UNK, QD (NK MG, 1-0-0-0, BRAUSETABLETTEN)
  10. LAXOBERAL [Concomitant]
     Active Substance: SODIUM PICOSULFATE
     Dosage: NK MG, 0-0-0-18, TROPFEN
  11. SOLEDUM [Concomitant]
     Active Substance: EUCALYPTOL
     Dosage: UNK UNK, BID (NK MG, 1-1-0-0)

REACTIONS (3)
  - Product prescribing error [Unknown]
  - Abdominal pain [Unknown]
  - Abdominal pain upper [Unknown]
